FAERS Safety Report 4380877-9 (Version None)
Quarter: 2004Q2

REPORT INFORMATION
  Report Type: 
  Country: None (occurrence: None)
  Receive Date: 20040616
  Receipt Date: 20040603
  Transmission Date: 20050107
  Serious: Yes (Life-Threatening)
  Sender: FDA-Public Use
  Company Number: 04P-056-0263269-00

PATIENT
  Age: 76 Year
  Sex: Male

DRUGS (6)
  1. CHYMOPAPAIN (CHYMODIACTIN) (CHYMOPAPAIN) (CHYMOPAPAIN) [Suspect]
     Indication: DRUG USE FOR UNKNOWN INDICATION
     Dosage: UNK
     Dates: start: 19990211
  2. PROFENID (KETOPROFEN) (KETOPROFEN) [Suspect]
     Indication: DRUG USE FOR UNKNOWN INDICATION
     Dosage: 100 MG, INTRAVENOUS
     Route: 042
     Dates: start: 19990211
  3. ALFENTANIL HCL [Suspect]
     Indication: DRUG USE FOR UNKNOWN INDICATION
     Dosage: 300 MCG, INTRAVENOUS
     Route: 042
     Dates: start: 19990211
  4. LIDOCAINE HYDROCHLORIDE [Suspect]
     Indication: DRUG USE FOR UNKNOWN INDICATION
     Dosage: 15 ML, INJECTION
     Dates: start: 19990211
  5. MIDAZOLAM HYDROCHLORIDE [Suspect]
     Indication: DRUG USE FOR UNKNOWN INDICATION
     Dosage: INTRAVENOUS
     Route: 042
     Dates: start: 19990211
  6. ACETAMINOPHEN WITH PROPOXYPHENE HCL TAB [Suspect]
     Indication: DRUG USE FOR UNKNOWN INDICATION
     Dosage: 2 GM, INTRAVENOUS
     Route: 042
     Dates: start: 19990211

REACTIONS (1)
  - MYOCARDIAL INFARCTION [None]
